FAERS Safety Report 15371411 (Version 1)
Quarter: 2018Q3

REPORT INFORMATION
  Report Type: Spontaneous
  Country: US (occurrence: US)
  Receive Date: 20180905
  Receipt Date: 20180905
  Transmission Date: 20181010
  Serious: Yes (Death)
  Sender: FDA-Public Use
  Company Number: None

PATIENT
  Age: 59 Year
  Sex: Male

DRUGS (2)
  1. XALKORI [Suspect]
     Active Substance: CRIZOTINIB
     Indication: NEOPLASM MALIGNANT
     Route: 048
  2. ZYKADIA [Concomitant]
     Active Substance: CERITINIB
     Dates: start: 20180725, end: 20180804

REACTIONS (1)
  - Death [None]

NARRATIVE: CASE EVENT DATE: 20180804
